FAERS Safety Report 7823159 (Version 2)
Quarter: 2013Q2

REPORT INFORMATION
  Report Type: Spontaneous
  Country: US (occurrence: US)
  Receive Date: 20110223
  Receipt Date: 20130514
  Transmission Date: 20140414
  Serious: Yes (Hospitalization, Other)
  Sender: FDA-Public Use
  Company Number: US-ROCHE-735392

PATIENT
  Age: 63 Year
  Sex: Female
  Weight: 77.1 kg

DRUGS (2)
  1. ACCUTANE [Suspect]
     Indication: ACNE
     Route: 065
     Dates: start: 198203, end: 198208
  2. ACCUTANE [Suspect]
     Route: 065
     Dates: start: 19850301, end: 19850901

REACTIONS (10)
  - Crohn^s disease [Unknown]
  - Gastrointestinal injury [Unknown]
  - Colitis [Recovering/Resolving]
  - Inflammatory bowel disease [Unknown]
  - Depression [Unknown]
  - Arthritis [Unknown]
  - Haemorrhoids [Unknown]
  - Anal abscess [Unknown]
  - Large intestine polyp [Unknown]
  - Irritable bowel syndrome [Unknown]
